FAERS Safety Report 4552878-9 (Version None)
Quarter: 2005Q1

REPORT INFORMATION
  Report Type: 
  Country: None (occurrence: None)
  Receive Date: 20050114
  Receipt Date: 20041201
  Transmission Date: 20050727
  Serious: Yes (Life-Threatening, Hospitalization, Disabling, Other)
  Sender: FDA-Public Use
  Company Number: US-MERCK-0412USA00243

PATIENT
  Age: 48 Year
  Sex: Female
  Weight: 149 kg

DRUGS (13)
  1. VIOXX [Suspect]
     Indication: OSTEOARTHRITIS
     Route: 048
     Dates: start: 19991227, end: 20040809
  2. VIOXX [Suspect]
     Route: 048
     Dates: start: 19991227, end: 20040809
  3. LEXAPRO [Concomitant]
     Route: 065
  4. MICARDIS [Concomitant]
     Route: 065
  5. MAXZIDE [Concomitant]
     Route: 065
  6. TRAZODONE HYDROCHLORIDE [Concomitant]
     Route: 065
  7. LASIX [Concomitant]
     Route: 065
  8. SKELAXIN [Concomitant]
     Route: 065
  9. KLOR-CON [Concomitant]
     Route: 065
  10. PREVACID [Concomitant]
     Route: 065
  11. [THERAPY UNSPECIFIED] [Concomitant]
     Route: 065
  12. ATIVAN [Concomitant]
     Route: 065
  13. DYAZIDE [Concomitant]
     Route: 065

REACTIONS (2)
  - CARDIAC FAILURE CONGESTIVE [None]
  - LOSS OF CONSCIOUSNESS [None]
